FAERS Safety Report 6657591-X (Version None)
Quarter: 2010Q1

REPORT INFORMATION
  Report Type: 
  Country: None (occurrence: None)
  Receive Date: 20100330
  Receipt Date: 20100324
  Transmission Date: 20100710
  Serious: Yes (Hospitalization, Other)
  Sender: FDA-Public Use
  Company Number: US-BAYER-200930978NA

PATIENT
  Age: 39 Year
  Sex: Female
  Weight: 57 kg

DRUGS (1)
  1. YAZ [Suspect]
     Indication: PREMENSTRUAL SYNDROME
     Route: 048
     Dates: end: 20071001

REACTIONS (5)
  - CHEST PAIN [None]
  - HYPERTENSION [None]
  - INSOMNIA [None]
  - LETHARGY [None]
  - MIGRAINE [None]
